FAERS Safety Report 4485016-1 (Version None)
Quarter: 2004Q3

REPORT INFORMATION
  Report Type: 
  Country: None (occurrence: None)
  Receive Date: 20040921
  Receipt Date: 20030826
  Transmission Date: 20050211
  Serious: Yes (Hospitalization)
  Sender: FDA-Public Use
  Company Number: 163-20785-03090080

PATIENT
  Age: 62 Year
  Sex: Male
  Weight: 99.7913 kg

DRUGS (5)
  1. THALOMID [Suspect]
     Indication: METASTATIC MALIGNANT MELANOMA
     Dosage: 400 MG, ORAL; SEE IMAGE
     Route: 048
     Dates: start: 20030611, end: 20030821
  2. THALOMID [Suspect]
     Indication: METASTATIC MALIGNANT MELANOMA
     Dosage: 400 MG, ORAL; SEE IMAGE
     Route: 048
     Dates: start: 20030822
  3. TEMODAR [Suspect]
     Indication: METASTATIC MALIGNANT MELANOMA
     Dosage: 170 MG, QD X6WKS
     Dates: start: 20030611
  4. DILANTIN [Concomitant]
  5. COMPAZINE [Concomitant]

REACTIONS (19)
  - ABDOMINAL PAIN [None]
  - ANAEMIA [None]
  - ATAXIA [None]
  - ATELECTASIS [None]
  - BLOOD ALBUMIN [None]
  - BLOOD ALBUMIN DECREASED [None]
  - CEREBELLAR HAEMORRHAGE [None]
  - CONSTIPATION [None]
  - DEEP VEIN THROMBOSIS [None]
  - FATIGUE [None]
  - HYPOKALAEMIA [None]
  - LEUKOPENIA [None]
  - NEUTROPENIA [None]
  - PELVIC PAIN [None]
  - PLEURAL EFFUSION [None]
  - PNEUMONIA [None]
  - PULMONARY EMBOLISM [None]
  - SUBCLAVIAN VEIN THROMBOSIS [None]
  - THROMBOCYTOPENIA [None]
